FAERS Safety Report 15477035 (Version 2)
Quarter: 2018Q4

REPORT INFORMATION
  Report Type: Spontaneous
  Country: US (occurrence: US)
  Receive Date: 20181009
  Receipt Date: 20181026
  Transmission Date: 20190205
  Serious: Yes (Other)
  Sender: FDA-Public Use
  Company Number: US-TEVA-2018-US-961774

PATIENT
  Age: 23 Year
  Sex: Male

DRUGS (2)
  1. DEXTROAMPHETAMINE/AMPHETAMINE [Concomitant]
     Active Substance: AMPHETAMINE\DEXTROAMPHETAMINE
     Indication: ATTENTION DEFICIT/HYPERACTIVITY DISORDER
     Route: 065
  2. BUPRENORPHINE. [Suspect]
     Active Substance: BUPRENORPHINE
     Dosage: INJECTED MATERIAL WAS PREPARED BY DISSOLVING A TABLET OF BUPRENORPHINE IN WATER
     Route: 013

REACTIONS (3)
  - Embolism [Recovering/Resolving]
  - Ischaemia [Recovering/Resolving]
  - Product administration error [Recovering/Resolving]
